FAERS Safety Report 22245450 (Version 1)
Quarter: 2023Q2

REPORT INFORMATION
  Report Type: Spontaneous
  Country: FR (occurrence: FR)
  Receive Date: 20230424
  Receipt Date: 20230424
  Transmission Date: 20230721
  Serious: Yes (Life-Threatening)
  Sender: FDA-Public Use
  Company Number: None

PATIENT

DRUGS (6)
  1. LAMOTRIGINE [Suspect]
     Active Substance: LAMOTRIGINE
     Indication: Suicide attempt
     Dosage: 15 DF, QD
     Route: 048
     Dates: start: 20220622, end: 20220622
  2. CHLORPROMAZINE [Suspect]
     Active Substance: CHLORPROMAZINE
     Indication: Suicide attempt
     Dosage: 60 DF, QD
     Route: 048
     Dates: start: 20220622, end: 20220622
  3. LORMETAZEPAM [Suspect]
     Active Substance: LORMETAZEPAM
     Indication: Suicide attempt
     Dosage: 28 DF, QD
     Route: 048
     Dates: start: 20220622, end: 20220622
  4. FLUOXETINE HYDROCHLORIDE [Suspect]
     Active Substance: FLUOXETINE HYDROCHLORIDE
     Indication: Suicide attempt
     Dosage: 8 DF, QD
     Route: 048
     Dates: start: 20220622, end: 20220622
  5. DESLORATADINE [Suspect]
     Active Substance: DESLORATADINE
     Indication: Suicide attempt
     Dosage: 19 DF, QD
     Route: 048
     Dates: start: 20220622, end: 20220622
  6. TRANXENE [Suspect]
     Active Substance: CLORAZEPATE DIPOTASSIUM
     Indication: Suicide attempt
     Dosage: 30 DF, QD
     Route: 048
     Dates: start: 20220622, end: 20220622

REACTIONS (2)
  - Disturbance in attention [Recovered/Resolved]
  - Intentional overdose [Recovered/Resolved]

NARRATIVE: CASE EVENT DATE: 20220622
